FAERS Safety Report 12750932 (Version 2)
Quarter: 2017Q3

REPORT INFORMATION
  Report Type: Spontaneous
  Country: US (occurrence: US)
  Receive Date: 20160915
  Receipt Date: 20170914
  Transmission Date: 20171127
  Serious: No
  Sender: FDA-Public Use
  Company Number: US-ASTELLAS-2016US020655

PATIENT
  Age: 68 Year
  Sex: Male

DRUGS (2)
  1. XTANDI [Suspect]
     Active Substance: ENZALUTAMIDE
     Route: 048
     Dates: start: 201701
  2. XTANDI [Suspect]
     Active Substance: ENZALUTAMIDE
     Indication: PROSTATE CANCER
     Dosage: UNK UNK, UNKNOWN FREQ.
     Route: 065

REACTIONS (11)
  - Nausea [Unknown]
  - Hot flush [Unknown]
  - Sleep disorder [Unknown]
  - Chills [Unknown]
  - Diarrhoea [Unknown]
  - Musculoskeletal pain [Unknown]
  - Rash pruritic [Unknown]
  - Fatigue [Unknown]
  - Hyperhidrosis [Unknown]
  - Pain in extremity [Unknown]
  - Joint swelling [Unknown]

NARRATIVE: CASE EVENT DATE: 20160525
